FAERS Safety Report 24097008 (Version 2)
Quarter: 2024Q4

REPORT INFORMATION
  Report Type: Report from Study
  Country: US (occurrence: US)
  Receive Date: 20240716
  Receipt Date: 20241003
  Transmission Date: 20250115
  Serious: Yes (Hospitalization, Other)
  Sender: TAKEDA
  Company Number: US-TAKEDA-2024TUS057248

PATIENT
  Sex: Female
  Weight: 54 kg

DRUGS (2)
  1. MARIBAVIR [Suspect]
     Active Substance: MARIBAVIR
     Indication: Cytomegalovirus infection
     Dosage: 400 MILLIGRAM, BID
     Route: 065
     Dates: start: 20240606
  2. MARIBAVIR [Suspect]
     Active Substance: MARIBAVIR
     Dosage: 400 MILLIGRAM, BID
     Route: 065

REACTIONS (7)
  - Pneumonia [Unknown]
  - Renal disorder [Unknown]
  - Urinary tract infection [Unknown]
  - Dehydration [Unknown]
  - Cytomegalovirus infection [Unknown]
  - Arthralgia [Unknown]
  - Nausea [Unknown]
